FAERS Safety Report 6088099-0 (Version None)
Quarter: 2009Q1

REPORT INFORMATION
  Report Type: 
  Country: None (occurrence: None)
  Receive Date: 20090218
  Receipt Date: 20090202
  Transmission Date: 20090719
  Serious: Yes (Death)
  Sender: FDA-Public Use
  Company Number: 8042756

PATIENT
  Sex: Male

DRUGS (5)
  1. KEPPRA [Suspect]
  2. NOOTROP [Suspect]
  3. VIMPAT [Suspect]
     Dosage: 50 MG 2/D
  4. PHENYTOIN [Suspect]
  5. VALPROATE SODIUM [Suspect]

REACTIONS (2)
  - BRAIN INJURY [None]
  - TOXIC ENCEPHALOPATHY [None]
